FAERS Safety Report 4675514-X (Version None)
Quarter: 2005Q2

REPORT INFORMATION
  Report Type: 
  Country: None (occurrence: None)
  Receive Date: 20050527
  Receipt Date: 20050330
  Transmission Date: 20051028
  Serious: No
  Sender: FDA-Public Use
  Company Number: US-BRISTOL-MYERS SQUIBB COMPANY-12916888

PATIENT
  Age: 25 Year
  Sex: Male

DRUGS (3)
  1. ABILIFY [Suspect]
     Dosage: INCREASED TO 20 MG/DAY
  2. PAXIL [Concomitant]
  3. TEGRETOL [Concomitant]

REACTIONS (3)
  - DYSTONIA [None]
  - HEAD BANGING [None]
  - INTENTIONAL SELF-INJURY [None]
